FAERS Safety Report 18295373 (Version 1)
Quarter: 2020Q3

REPORT INFORMATION
  Report Type: Report from Study
  Country: MA (occurrence: MA)
  Receive Date: 20200922
  Receipt Date: 20200922
  Transmission Date: 20201103
  Serious: Yes (Death, Other)
  Sender: FDA-Public Use
  Company Number: MA-PFIZER INC-2020361088

PATIENT
  Age: 18 Year
  Sex: Female

DRUGS (5)
  1. CYTARABINE. [Suspect]
     Active Substance: CYTARABINE
     Indication: ACUTE MEGAKARYOCYTIC LEUKAEMIA
     Dosage: 200 MG/M2, CYCLIC, DAY X 7DAYS
     Route: 037
  2. ASPARAGINASE [Suspect]
     Active Substance: ASPARAGINASE
     Indication: ACUTE MEGAKARYOCYTIC LEUKAEMIA
     Dosage: UNK, CYCLIC (6000 IU/M^2)
  3. DAUNORUBICIN [Suspect]
     Active Substance: DAUNORUBICIN
     Indication: ACUTE MEGAKARYOCYTIC LEUKAEMIA
     Dosage: 50 MG/M2, CYCLIC (DAY X 3 DAYS)
  4. HYDROXYUREA. [Suspect]
     Active Substance: HYDROXYUREA
     Indication: ACUTE MEGAKARYOCYTIC LEUKAEMIA
     Dosage: 50 MG/KG, CYCLIC DAILY, DURING 4 DAYS
  5. CYTARABINE. [Suspect]
     Active Substance: CYTARABINE
     Dosage: CYCLIC (2 G/M^2 TWICE A DAY DURING 4 DAYS)

REACTIONS (1)
  - Haemorrhagic disorder [Fatal]
